FAERS Safety Report 13671104 (Version 1)
Quarter: 2017Q2

REPORT INFORMATION
  Report Type: Spontaneous
  Country: US (occurrence: US)
  Receive Date: 20170620
  Receipt Date: 20170620
  Transmission Date: 20170830
  Serious: No
  Sender: FDA-Public Use
  Company Number: US-ROCHE-1313698

PATIENT
  Sex: Female

DRUGS (10)
  1. BETA CAROTENE [Concomitant]
  2. XELODA [Suspect]
     Active Substance: CAPECITABINE
     Indication: BREAST CANCER
     Dosage: TAKES 2 TABLETS TWICE DAILY, 7 DAYS ON/7DAYS OFF
     Route: 048
     Dates: start: 20130910
  3. ASPIRIN. [Concomitant]
     Active Substance: ASPIRIN
  4. AMLODIPINE [Concomitant]
     Active Substance: AMLODIPINE BESYLATE
  5. VITAMIN D3 [Concomitant]
     Active Substance: CHOLECALCIFEROL
  6. SELENIUM [Concomitant]
     Active Substance: SELENIUM
  7. ATENOLOL. [Concomitant]
     Active Substance: ATENOLOL
  8. VITAMIN E [Concomitant]
     Active Substance: .ALPHA.-TOCOPHEROL
  9. IBUPROFEN. [Concomitant]
     Active Substance: IBUPROFEN
  10. TRAMADOL. [Concomitant]
     Active Substance: TRAMADOL

REACTIONS (2)
  - Photosensitivity reaction [Unknown]
  - Fatigue [Unknown]
